FAERS Safety Report 19127490 (Version 1)
Quarter: 2021Q2

REPORT INFORMATION
  Report Type: Spontaneous
  Country: US (occurrence: US)
  Receive Date: 20210413
  Receipt Date: 20210413
  Transmission Date: 20210717
  Serious: No
  Sender: FDA-Public Use
  Company Number: US-ALLERGAN-2013563US

PATIENT
  Age: 83 Year
  Sex: Female

DRUGS (7)
  1. METOPROLOL. [Concomitant]
     Active Substance: METOPROLOL
  2. OMEPRAZOLE. [Concomitant]
     Active Substance: OMEPRAZOLE
  3. LESCOL [Concomitant]
     Active Substance: FLUVASTATIN SODIUM
  4. DETROL [Concomitant]
     Active Substance: TOLTERODINE TARTRATE
  5. LUMIGAN [Suspect]
     Active Substance: BIMATOPROST
     Indication: PRODUCT USED FOR UNKNOWN INDICATION
     Dosage: 2 GTT, QD
     Route: 047
  6. RAMIPRIL. [Concomitant]
     Active Substance: RAMIPRIL
  7. ECOTRIN [Concomitant]
     Active Substance: ASPIRIN

REACTIONS (3)
  - Product container issue [Unknown]
  - Product use complaint [Unknown]
  - Product dose omission issue [Unknown]

NARRATIVE: CASE EVENT DATE: 202003
